FAERS Safety Report 13480834 (Version 8)
Quarter: 2018Q4

REPORT INFORMATION
  Report Type: Spontaneous
  Country: US (occurrence: US)
  Receive Date: 20170425
  Receipt Date: 20181231
  Transmission Date: 20190204
  Serious: Yes (Hospitalization)
  Sender: FDA-Public Use
  Company Number: US-ACTELION-A-US2017-152598

PATIENT
  Age: 31 Year
  Sex: Male
  Weight: 113.38 kg

DRUGS (5)
  1. REMODULIN [Concomitant]
     Active Substance: TREPROSTINIL
  2. OPSUMIT [Suspect]
     Active Substance: MACITENTAN
     Indication: PULMONARY HYPERTENSION
     Dosage: 10 MG, QD
     Route: 048
  3. OPSUMIT [Suspect]
     Active Substance: MACITENTAN
     Dosage: 10 MG, QD
     Route: 048
  4. WARFARIN [Concomitant]
     Active Substance: WARFARIN
  5. ADEMPAS [Concomitant]
     Active Substance: RIOCIGUAT

REACTIONS (13)
  - Vascular device infection [Unknown]
  - Arthralgia [Unknown]
  - Catheter site pain [Unknown]
  - Catheter site swelling [Unknown]
  - Application site erythema [Unknown]
  - Catheter site erythema [Unknown]
  - Catheter management [Unknown]
  - Catheter site rash [Unknown]
  - Vena cava filter removal [Unknown]
  - Catheter site vesicles [Unknown]
  - Rash pruritic [Unknown]
  - Muscle strain [Unknown]
  - Catheter site pruritus [Unknown]

NARRATIVE: CASE EVENT DATE: 201712
